FAERS Safety Report 13380244 (Version 1)
Quarter: 2017Q1

REPORT INFORMATION
  Report Type: Spontaneous
  Country: US (occurrence: US)
  Receive Date: 20170328
  Receipt Date: 20170328
  Transmission Date: 20170429
  Serious: Yes (Other)
  Sender: FDA-Public Use
  Company Number: US-BEH-2017079125

PATIENT
  Sex: Female
  Weight: 43.84 kg

DRUGS (22)
  1. ATENOLOL. [Concomitant]
     Active Substance: ATENOLOL
  2. GLUCONATE DE CALCIUM AGUETTANT [Concomitant]
  3. FISH OIL [Concomitant]
     Active Substance: FISH OIL
  4. FIORINAL [Concomitant]
     Active Substance: ASPIRIN\BUTALBITAL\CAFFEINE
  5. DIAZEPAM. [Concomitant]
     Active Substance: DIAZEPAM
  6. ZINC                               /00156502/ [Concomitant]
  7. MECLIZINE [Concomitant]
     Active Substance: MECLIZINE HYDROCHLORIDE
  8. PROMETHAZINE [Concomitant]
     Active Substance: PROMETHAZINE\PROMETHAZINE HYDROCHLORIDE
  9. KLOR-CON [Concomitant]
     Active Substance: POTASSIUM CHLORIDE
  10. ALBUTEROL                          /00139501/ [Concomitant]
     Active Substance: ALBUTEROL
  11. PREDNISONE. [Concomitant]
     Active Substance: PREDNISONE
  12. VITAMIN D3 [Concomitant]
     Active Substance: CHOLECALCIFEROL
  13. EPIPEN [Concomitant]
     Active Substance: EPINEPHRINE
  14. TOPAMAX [Concomitant]
     Active Substance: TOPIRAMATE
  15. CALCIUM [Concomitant]
     Active Substance: CALCIUM
  16. HIZENTRA [Suspect]
     Active Substance: HUMAN IMMUNOGLOBULIN G
     Indication: IMMUNODEFICIENCY COMMON VARIABLE
     Dosage: 10 G, QW
     Route: 058
     Dates: start: 20110222
  17. HIZENTRA [Suspect]
     Active Substance: HUMAN IMMUNOGLOBULIN G
     Dosage: UNK
     Route: 058
  18. AMITRIPTYLINE [Concomitant]
     Active Substance: AMITRIPTYLINE
  19. LIDOCAINE/PRILOCAINE [Concomitant]
     Active Substance: LIDOCAINE\PRILOCAINE
  20. PROCHLORPERAZINE. [Concomitant]
     Active Substance: PROCHLORPERAZINE
  21. AMBIEN [Concomitant]
     Active Substance: ZOLPIDEM TARTRATE
  22. HYDROCHLOROTHIAZIDE. [Concomitant]
     Active Substance: HYDROCHLOROTHIAZIDE

REACTIONS (5)
  - Tremor [Unknown]
  - Hyperhidrosis [Unknown]
  - Dehydration [Unknown]
  - Viral infection [Unknown]
  - Pyrexia [Unknown]
